FAERS Safety Report 23648727 (Version 1)
Quarter: 2024Q1

REPORT INFORMATION
  Report Type: Spontaneous
  Country: US (occurrence: US)
  Receive Date: 20240319
  Receipt Date: 20240319
  Transmission Date: 20240410
  Serious: Yes (Hospitalization)
  Sender: FDA-Public Use
  Company Number: US-AMERICAN REGENT INC-2024000924

PATIENT
  Age: 46 Year
  Sex: Female

DRUGS (2)
  1. EPINEPHRINE [Suspect]
     Active Substance: EPINEPHRINE
     Indication: Abdominoplasty
     Dosage: LOCAL INFILTRATION OF 3 BAGS OF 35 MG EPINEPHRINE IN 1 L OF FLUID (105 MG)
     Route: 065
  2. NITROGLYCERIN [Suspect]
     Active Substance: NITROGLYCERIN
     Indication: Procedural hypertension
     Dosage: UNK

REACTIONS (7)
  - Hypertensive emergency [Recovered/Resolved]
  - Cardiogenic shock [Recovered/Resolved]
  - Drug ineffective [Recovered/Resolved]
  - Stress cardiomyopathy [Recovered/Resolved]
  - Pulmonary oedema [Recovered/Resolved]
  - Accidental overdose [Recovered/Resolved]
  - Product use in unapproved indication [Unknown]
